FAERS Safety Report 22675879 (Version 3)
Quarter: 2024Q3

REPORT INFORMATION
  Report Type: Spontaneous
  Country: BR (occurrence: BR)
  Receive Date: 20230706
  Receipt Date: 20240702
  Transmission Date: 20241016
  Serious: Yes (Death, Other)
  Sender: TAKEDA
  Company Number: BR-TAKEDA-2023TUS065355

PATIENT
  Age: 29 Year
  Sex: Female

DRUGS (1)
  1. LISDEXAMFETAMINE DIMESYLATE [Suspect]
     Active Substance: LISDEXAMFETAMINE DIMESYLATE
     Indication: Attention deficit hyperactivity disorder
     Dosage: UNK
     Route: 065

REACTIONS (6)
  - Suspected suicide [Fatal]
  - Intentional product use issue [Fatal]
  - Myocardial infarction [Unknown]
  - Suicidal ideation [Unknown]
  - Illness [Unknown]
  - Depression [Unknown]

NARRATIVE: CASE EVENT DATE: 20220716
